FAERS Safety Report 15085294 (Version 1)
Quarter: 2018Q2

REPORT INFORMATION
  Report Type: Report from Study
  Country: US (occurrence: US)
  Receive Date: 20180628
  Receipt Date: 20180628
  Transmission Date: 20180711
  Serious: Yes (Death, Other)
  Sender: FDA-Public Use
  Company Number: US-SHIRE-US201812671

PATIENT
  Sex: Male

DRUGS (2)
  1. GATTEX [Suspect]
     Active Substance: TEDUGLUTIDE\WATER
     Indication: SHORT-BOWEL SYNDROME
     Dosage: 0.36 ML, 1X/DAY:QD
     Route: 058
     Dates: start: 20160630, end: 20180321
  2. GATTEX [Suspect]
     Active Substance: TEDUGLUTIDE\WATER
     Dosage: UNK
     Route: 065
     Dates: start: 20160707, end: 20180321

REACTIONS (4)
  - Sepsis [Unknown]
  - Fall [Unknown]
  - Pelvic fracture [Unknown]
  - Cardiac failure [Fatal]
